FAERS Safety Report 5931790-4 (Version None)
Quarter: 2008Q4

REPORT INFORMATION
  Report Type: 
  Country: None (occurrence: None)
  Receive Date: 20081027
  Receipt Date: 20081015
  Transmission Date: 20090506
  Serious: Yes (Other)
  Sender: FDA-Public Use
  Company Number: GB-PFIZER INC-2006123338

PATIENT
  Age: 22 Year
  Sex: Female

DRUGS (6)
  1. PREDNISOLONE [Suspect]
     Indication: HEART TRANSPLANT
  2. PREDNISOLONE [Suspect]
     Indication: LUNG TRANSPLANT
  3. CYCLOSPORINE [Suspect]
     Indication: HEART TRANSPLANT
  4. CYCLOSPORINE [Suspect]
     Indication: LUNG TRANSPLANT
  5. AZATHIOPRINE [Suspect]
     Indication: HEART TRANSPLANT
  6. AZATHIOPRINE [Suspect]
     Indication: LUNG TRANSPLANT

REACTIONS (8)
  - BRONCHIECTASIS [None]
  - DRUG LEVEL BELOW THERAPEUTIC [None]
  - LOWER RESPIRATORY TRACT INFECTION [None]
  - NORMAL NEWBORN [None]
  - PULMONARY FUNCTION TEST DECREASED [None]
  - RESPIRATORY DISORDER [None]
  - RESPIRATORY GAS EXCHANGE DISORDER [None]
  - STENOTROPHOMONAS INFECTION [None]
